FAERS Safety Report 4581306-2 (Version None)
Quarter: 2005Q1

REPORT INFORMATION
  Report Type: 
  Country: None (occurrence: None)
  Receive Date: 20050214
  Receipt Date: 20040923
  Transmission Date: 20050727
  Serious: No
  Sender: FDA-Public Use
  Company Number: US-GLAXOSMITHKLINE-A0527125A

PATIENT
  Age: 53 Year
  Sex: Female

DRUGS (4)
  1. LAMICTAL [Suspect]
     Indication: BIPOLAR DISORDER
     Dosage: 200MG PER DAY
     Route: 048
     Dates: start: 20040801, end: 20040923
  2. ZOLOFT [Concomitant]
  3. RESTORIL [Concomitant]
  4. LOTREL [Concomitant]

REACTIONS (2)
  - ERYTHEMA [None]
  - PRURITUS [None]
